FAERS Safety Report 4697594-8 (Version None)
Quarter: 2005Q2

REPORT INFORMATION
  Report Type: 
  Country: None (occurrence: None)
  Receive Date: 20050622
  Receipt Date: 20050620
  Transmission Date: 20051028
  Serious: Yes (Death)
  Sender: FDA-Public Use
  Company Number: MY-MERCK-0506MYS00015

PATIENT
  Age: 53 Year
  Sex: Male

DRUGS (1)
  1. PRIMAXIN [Suspect]
     Indication: SEPSIS
     Route: 041

REACTIONS (3)
  - BLISTER [None]
  - MULTI-ORGAN FAILURE [None]
  - RASH [None]
